FAERS Safety Report 11023024 (Version 1)
Quarter: 2015Q2

REPORT INFORMATION
  Report Type: Spontaneous
  Country: US (occurrence: US)
  Receive Date: 20150413
  Receipt Date: 20150413
  Transmission Date: 20150821
  Serious: No
  Sender: FDA-Public Use
  Company Number: US-B.I. PHARMACEUTICALS,INC./RIDGEFIELD-2015-BI-17975BP

PATIENT
  Sex: Male
  Weight: 109 kg

DRUGS (5)
  1. LIPITOR [Concomitant]
     Active Substance: ATORVASTATIN CALCIUM
     Indication: BLOOD CHOLESTEROL INCREASED
     Dosage: 10 MG
     Route: 065
  2. GENERIC CELEBREX [Concomitant]
     Indication: ARTHRITIS
     Dosage: 10 MG
     Route: 065
  3. CELEBREX [Concomitant]
     Active Substance: CELECOXIB
     Indication: ARTHRITIS
     Dosage: 10 MG
     Route: 065
     Dates: start: 1998
  4. MOBIC [Suspect]
     Active Substance: MELOXICAM
     Indication: ARTHRITIS
     Dosage: 10 MG
     Route: 065
  5. FENOFIBRATE. [Concomitant]
     Active Substance: FENOFIBRATE
     Indication: DYSPEPSIA
     Dosage: 134 MG
     Route: 048

REACTIONS (3)
  - Drug effect variable [Unknown]
  - Drug ineffective [Unknown]
  - Pelvic discomfort [Unknown]
